FAERS Safety Report 19952295 (Version 1)
Quarter: 2021Q4

REPORT INFORMATION
  Report Type: Spontaneous
  Country: GB (occurrence: GB)
  Receive Date: 20211014
  Receipt Date: 20211014
  Transmission Date: 20220303
  Serious: Yes (Other)
  Sender: FDA-Public Use
  Company Number: GB-BRISTOL LABORATORIES LTD-BLL202107-000164

PATIENT
  Sex: Male

DRUGS (10)
  1. FUROSEMIDE [Suspect]
     Active Substance: FUROSEMIDE
     Route: 065
  2. RAMIPRIL [Suspect]
     Active Substance: RAMIPRIL
     Dosage: 1.25 MG
     Route: 065
  3. SPIRONOLACTONE [Suspect]
     Active Substance: SPIRONOLACTONE
     Route: 065
  4. BISOPROLOL [Concomitant]
     Active Substance: BISOPROLOL
  5. TAMSULOSIN [Concomitant]
     Active Substance: TAMSULOSIN
  6. FINASTERIDE [Concomitant]
     Active Substance: FINASTERIDE
  7. INSULIN NOS [Concomitant]
     Active Substance: INSULIN NOS
  8. PENTASA [Concomitant]
     Active Substance: MESALAMINE
     Dosage: SACHETS
  9. RABEPRAZOLE [Concomitant]
     Active Substance: RABEPRAZOLE
  10. SIMVASTATIN [Concomitant]
     Active Substance: SIMVASTATIN

REACTIONS (6)
  - Peripheral swelling [Unknown]
  - Blood potassium decreased [Unknown]
  - Skin mass [Unknown]
  - Dizziness [Not Recovered/Not Resolved]
  - Oedema [Not Recovered/Not Resolved]
  - Rash [Not Recovered/Not Resolved]
